FAERS Safety Report 6208445-4 (Version None)
Quarter: 2009Q2

REPORT INFORMATION
  Report Type: 
  Country: None (occurrence: None)
  Receive Date: 20090529
  Receipt Date: 20090519
  Transmission Date: 20091009
  Serious: Yes (Other)
  Sender: FDA-Public Use
  Company Number: CA-ELI_LILLY_AND_COMPANY-CA200905003834

PATIENT
  Age: 15 Year
  Sex: Female
  Weight: 48 kg

DRUGS (9)
  1. OLANZAPINE [Suspect]
     Indication: ANOREXIA NERVOSA
     Dosage: 5 MG, EACH EVENING
  2. OLANZAPINE [Interacting]
     Dosage: 2.5 MG, UNK
  3. FLUOXETINE HYDROCHLORIDE [Interacting]
     Indication: ANXIETY
     Dosage: 20 MG, UNK
  4. FLUOXETINE HYDROCHLORIDE [Interacting]
     Dosage: 40 MG, UNK
  5. FLUOXETINE HYDROCHLORIDE [Interacting]
     Dosage: 60 MG, UNK
  6. CLONAZEPAM [Concomitant]
     Dosage: 0.5 MG, 2/D
  7. RISPERIDONE [Concomitant]
     Dosage: 0.25 MG, UNK
  8. RISPERIDONE [Concomitant]
     Dosage: 0.5 MG, UNK
  9. RISPERIDONE [Concomitant]
     Dosage: 0.75 MG, UNK

REACTIONS (2)
  - DRUG INTERACTION [None]
  - ELECTROCARDIOGRAM QT PROLONGED [None]
